FAERS Safety Report 22229920 (Version 1)
Quarter: 2023Q2

REPORT INFORMATION
  Report Type: Spontaneous
  Country: US (occurrence: US)
  Receive Date: 20230419
  Receipt Date: 20230419
  Transmission Date: 20230722
  Serious: No
  Sender: FDA-Public Use
  Company Number: US-MYLANLABS-2023M1038756

PATIENT
  Sex: Male

DRUGS (1)
  1. OCTREOTIDE ACETATE [Suspect]
     Active Substance: OCTREOTIDE ACETATE
     Indication: Gastrointestinal haemorrhage
     Dosage: 1 MILLILITER, Q8H
     Route: 058

REACTIONS (2)
  - Off label use [Unknown]
  - Product packaging quantity issue [Unknown]
